FAERS Safety Report 10886096 (Version 1)
Quarter: 2015Q1

REPORT INFORMATION
  Report Type: Spontaneous
  Country: US (occurrence: None)
  Receive Date: 20150302
  Receipt Date: 20150302
  Transmission Date: 20150721
  Serious: Yes (Other)
  Sender: FDA-Public Use
  Company Number: US-H14001-15-00092

PATIENT
  Age: 60 Year
  Sex: Male

DRUGS (3)
  1. FENTANYL (FENTANYL) [Suspect]
     Active Substance: FENTANYL
     Indication: INDUCTION OF ANAESTHESIA
     Route: 042
     Dates: start: 20140124, end: 20140124
  2. METHYLENE BLUE (METHYLTHIONINIUM CHLORIDE) [Concomitant]
     Active Substance: METHYLENE BLUE
  3. FLUOXETINE (FLUOXETINE) [Suspect]
     Active Substance: FLUOXETINE HYDROCHLORIDE
     Indication: PRODUCT USED FOR UNKNOWN INDICATION

REACTIONS (4)
  - Serotonin syndrome [None]
  - Procedural complication [None]
  - Drug interaction [None]
  - Myoclonus [None]

NARRATIVE: CASE EVENT DATE: 20140124
